FAERS Safety Report 10710901 (Version 1)
Quarter: 2015Q1

REPORT INFORMATION
  Report Type: Spontaneous
  Country: FR (occurrence: None)
  Receive Date: 20150113
  Receipt Date: 20150113
  Transmission Date: 20150721
  Serious: Yes (Other)
  Sender: FDA-Public Use
  Company Number: FR-20140434

PATIENT
  Age: 64 Year
  Sex: Male

DRUGS (9)
  1. BISOPROLOL (BISOPROLOL) [Concomitant]
     Active Substance: BISOPROLOL
  2. HEXABRIX [Suspect]
     Active Substance: IOXAGLATE MEGLUMINE\IOXAGLATE SODIUM
     Indication: ARTERIOGRAM CORONARY
     Route: 041
     Dates: start: 20141201, end: 20141201
  3. KARDEGIC [Concomitant]
     Active Substance: ASPIRIN LYSINE
  4. TAHOR [Concomitant]
     Active Substance: ATORVASTATIN CALCIUM
  5. NATISPRAY (GLYCERYL TRINITRATE) [Concomitant]
  6. BRILIQUE (TICAGRELOR) [Concomitant]
     Active Substance: TICAGRELOR
  7. INIPOMP (PANTOPRAZOLE SODIUM SESQUIHYDRATE) [Concomitant]
  8. TRIATEC (RAMIPRIL) [Concomitant]
     Active Substance: RAMIPRIL
  9. FLUDEX (INDAPAMIDE) 1.5MG [Concomitant]
     Active Substance: INDAPAMIDE

REACTIONS (5)
  - Hypertension [None]
  - Unresponsive to stimuli [None]
  - Confusional state [None]
  - Disorientation [None]
  - Seizure [None]

NARRATIVE: CASE EVENT DATE: 20141201
